FAERS Safety Report 16716077 (Version 1)
Quarter: 2019Q3

REPORT INFORMATION
  Report Type: Not Available
  Country: US (occurrence: US)
  Receive Date: 20190819
  Receipt Date: 20190819
  Transmission Date: 20191005
  Serious: No
  Sender: FDA-Public Use
  Company Number: US-NEUROCRINE BIOSCIENCES INC.-2019NBI02243

PATIENT
  Age: 77 Year
  Sex: Female

DRUGS (18)
  1. FLUTICASONE. [Concomitant]
     Active Substance: FLUTICASONE
  2. FOLIC ACID. [Concomitant]
     Active Substance: FOLIC ACID
  3. ONDANSETRON [Concomitant]
     Active Substance: ONDANSETRON
  4. INGREZZA [Suspect]
     Active Substance: VALBENAZINE
     Indication: TARDIVE DYSKINESIA
     Route: 048
     Dates: start: 20190625, end: 2019
  5. ATORVASTATIN [Concomitant]
     Active Substance: ATORVASTATIN
  6. FERROUS SULFATE. [Concomitant]
     Active Substance: FERROUS SULFATE
  7. GABAPENTIN. [Concomitant]
     Active Substance: GABAPENTIN
  8. MVI [Concomitant]
     Active Substance: VITAMINS
  9. PRILOSEC [Concomitant]
     Active Substance: OMEPRAZOLE MAGNESIUM
  10. SERTRALINE [Concomitant]
     Active Substance: SERTRALINE HYDROCHLORIDE
  11. VITAMIN D [Concomitant]
     Active Substance: VITAMIN D NOS
  12. HYDRALAZINE [Concomitant]
     Active Substance: HYDRALAZINE HYDROCHLORIDE
  13. METOPROLOL. [Concomitant]
     Active Substance: METOPROLOL
  14. MYRBETRIQ [Concomitant]
     Active Substance: MIRABEGRON
  15. BUSPIRONE [Concomitant]
     Active Substance: BUSPIRONE HYDROCHLORIDE
  16. NIFEDIPINE. [Concomitant]
     Active Substance: NIFEDIPINE
  17. RANITIDINE. [Concomitant]
     Active Substance: RANITIDINE
  18. TRAMADOL. [Concomitant]
     Active Substance: TRAMADOL

REACTIONS (1)
  - Somnolence [Unknown]

NARRATIVE: CASE EVENT DATE: 20190628
